FAERS Safety Report 5175581-3 (Version None)
Quarter: 2006Q4

REPORT INFORMATION
  Report Type: 
  Country: None (occurrence: None)
  Receive Date: 20061212
  Receipt Date: 20061212
  Transmission Date: 20070319
  Serious: No
  Sender: FDA-Public Use
  Company Number: None

PATIENT
  Age: 70 Year
  Sex: Female
  Weight: 53 kg

DRUGS (12)
  1. FLEETS PHOSPHOSODA FLEETS [Suspect]
     Indication: COLONOSCOPY
     Dosage: 45ML DAILY X1 DOSE PO
     Route: 048
  2. SYNTHROID [Concomitant]
  3. PRILOSEC [Concomitant]
  4. ASPIRIN [Concomitant]
  5. CIPRO [Concomitant]
  6. VYTORIN [Concomitant]
  7. HYDROCHLOROTHIAZIDE [Concomitant]
  8. TOPROL-XL [Concomitant]
  9. ACIPHEX [Concomitant]
  10. OS-CAL [Concomitant]
  11. ASCORBIC ACID [Concomitant]
  12. VITAMIN E [Concomitant]

REACTIONS (1)
  - RENAL FAILURE CHRONIC [None]
